FAERS Safety Report 8151012-6 (Version None)
Quarter: 2012Q1

REPORT INFORMATION
  Report Type: 
  Country: None (occurrence: None)
  Receive Date: 20120220
  Receipt Date: 20120215
  Transmission Date: 20120608
  Serious: Yes (Death, Hospitalization, Other)
  Sender: FDA-Public Use
  Company Number: US-BRISTOL-MYERS SQUIBB COMPANY-16306854

PATIENT
  Age: 67 Year
  Sex: Male
  Weight: 61 kg

DRUGS (3)
  1. ERBITUX [Suspect]
     Indication: OESOPHAGEAL ADENOCARCINOMA
     Dosage: LAST DOSE ON 12DEC2011(1163MG),11JAN2012
     Dates: start: 20111205
  2. TAXOL [Suspect]
     Indication: OESOPHAGEAL ADENOCARCINOMA
     Dosage: LAST DOSE ON 12DEC2011(177MG) 263MG:11JAN2012
     Dates: start: 20111205
  3. CISPLATIN [Suspect]
     Indication: OESOPHAGEAL ADENOCARCINOMA
     Dosage: LAST DOSE ON 12DEC2011
     Dates: start: 20111205

REACTIONS (7)
  - DERMATITIS ACNEIFORM [None]
  - ATRIAL FIBRILLATION [None]
  - OESOPHAGEAL HAEMORRHAGE [None]
  - DYSPNOEA [None]
  - DYSPHAGIA [None]
  - OESOPHAGEAL PERFORATION [None]
  - PNEUMONIA [None]
